FAERS Safety Report 7596742-X (Version None)
Quarter: 2011Q3

REPORT INFORMATION
  Report Type: 
  Country: None (occurrence: None)
  Receive Date: 20110708
  Receipt Date: 20110705
  Transmission Date: 20111222
  Serious: Yes (Hospitalization, Other)
  Sender: FDA-Public Use
  Company Number: US-PFIZER INC-2009314323

PATIENT
  Sex: Female
  Weight: 9 kg

DRUGS (10)
  1. CEFTRIAXONE [Concomitant]
     Dosage: UNK
  2. FOSPHENYTOIN [Concomitant]
     Dosage: UNK
  3. DILANTIN [Suspect]
     Dosage: 50 MG, 2X/DAY
     Route: 048
     Dates: start: 20080808, end: 20080814
  4. PHENOBARBITAL [Concomitant]
     Dosage: 20 MG, 2X/DAY
     Route: 048
  5. TEGRETOL [Concomitant]
     Dosage: UNK
  6. DILANTIN [Suspect]
     Indication: CONVULSION
     Dosage: 25MG IN THE MORNING AND 50MG IN THE EVENING
     Route: 048
     Dates: start: 20080731, end: 20080808
  7. KEPPRA [Concomitant]
     Dosage: UNK
  8. TRILEPTAL [Concomitant]
     Dosage: UNK
  9. ATIVAN [Concomitant]
     Dosage: 1.2 MG, UNK
  10. VALIUM [Concomitant]
     Dosage: 6 MG, UNK

REACTIONS (1)
  - STEVENS-JOHNSON SYNDROME [None]
